FAERS Safety Report 5551984-X (Version None)
Quarter: 2007Q4

REPORT INFORMATION
  Report Type: 
  Country: None (occurrence: None)
  Receive Date: 20071212
  Receipt Date: 20070606
  Transmission Date: 20080405
  Serious: No
  Sender: FDA-Public Use
  Company Number: US-AMGEN-KDL225857

PATIENT
  Sex: Male
  Weight: 72.2 kg

DRUGS (7)
  1. ENBREL [Suspect]
     Indication: RHEUMATOID ARTHRITIS
     Route: 058
     Dates: start: 20000201
  2. METHOTREXATE [Concomitant]
     Dates: start: 19970101
  3. CELEBREX [Concomitant]
     Dates: start: 19970101
  4. FOSAMAX [Concomitant]
     Dates: start: 20000101
  5. COUMADIN [Concomitant]
     Dates: start: 19980101
  6. PREVACID [Concomitant]
     Dates: start: 20000101
  7. TOPROL-XL [Concomitant]
     Dates: start: 20000101

REACTIONS (3)
  - INJURY [None]
  - OSTEOPOROSIS [None]
  - SPINAL FRACTURE [None]
